FAERS Safety Report 14356376 (Version 1)
Quarter: 2018Q1

REPORT INFORMATION
  Report Type: Spontaneous
  Country: US (occurrence: US)
  Receive Date: 20180105
  Receipt Date: 20180105
  Transmission Date: 20180509
  Serious: No
  Sender: FDA-Public Use
  Company Number: US-ALLERGAN-1724232US

PATIENT
  Age: 28 Year
  Sex: Female
  Weight: 105.67 kg

DRUGS (1)
  1. KYBELLA [Suspect]
     Active Substance: DEOXYCHOLIC ACID
     Indication: FAT TISSUE INCREASED
     Dosage: UNK UNK, SINGLE
     Route: 065
     Dates: start: 20161215, end: 20161215

REACTIONS (6)
  - Wrong technique in product usage process [Unknown]
  - Cyst rupture [Unknown]
  - Injection site pain [Recovered/Resolved]
  - Injection site mass [Not Recovered/Not Resolved]
  - Injection site swelling [Recovering/Resolving]
  - Nodule [Not Recovered/Not Resolved]

NARRATIVE: CASE EVENT DATE: 20161215
